FAERS Safety Report 17676633 (Version 4)
Quarter: 2020Q2

REPORT INFORMATION
  Report Type: Report from Study
  Country: US (occurrence: US)
  Receive Date: 20200416
  Receipt Date: 20200514
  Transmission Date: 20200714
  Serious: Yes (Other)
  Sender: FDA-Public Use
  Company Number: NVSC2020US100710

PATIENT
  Age: 68 Year
  Sex: Female

DRUGS (2)
  1. PIQRAY [Suspect]
     Active Substance: ALPELISIB
     Indication: PRODUCT USED FOR UNKNOWN INDICATION
     Dosage: UNK
     Route: 048
     Dates: end: 20200314
  2. PIQRAY [Suspect]
     Active Substance: ALPELISIB
     Dosage: UNK
     Route: 048
     Dates: start: 20200403

REACTIONS (13)
  - Eye irritation [Unknown]
  - Circulatory collapse [Unknown]
  - Body temperature increased [Unknown]
  - Blood glucose increased [Unknown]
  - Rash pruritic [Unknown]
  - Oropharyngeal pain [Unknown]
  - Rash [Unknown]
  - Sunburn [Unknown]
  - Chills [Unknown]
  - Asthenia [Unknown]
  - Vomiting [Unknown]
  - Feeding disorder [Unknown]
  - Pyrexia [Unknown]

NARRATIVE: CASE EVENT DATE: 20200414
